FAERS Safety Report 21809640 (Version 4)
Quarter: 2023Q1

REPORT INFORMATION
  Report Type: Report from Study
  Country: US (occurrence: US)
  Receive Date: 20230103
  Receipt Date: 20230217
  Transmission Date: 20230418
  Serious: Yes (Hospitalization)
  Sender: FDA-Public Use
  Company Number: US-002147023-NVSC2022US302257

PATIENT
  Sex: Male

DRUGS (1)
  1. KYMRIAH [Suspect]
     Active Substance: TISAGENLECLEUCEL
     Indication: Diffuse large B-cell lymphoma
     Dosage: UNK UNK, ONCE/SINGLE (3.0E8 CAR-POSITIVE VIABLE T CELLS)
     Route: 042
     Dates: start: 20221206, end: 20221206

REACTIONS (3)
  - Loss of consciousness [Unknown]
  - White blood cell count decreased [Unknown]
  - Red blood cell count decreased [Unknown]
